FAERS Safety Report 21777284 (Version 1)
Quarter: 2022Q4

REPORT INFORMATION
  Report Type: Spontaneous
  Country: IN (occurrence: IN)
  Receive Date: 20221226
  Receipt Date: 20221226
  Transmission Date: 20230112
  Serious: Yes (Hospitalization)
  Sender: FDA-Public Use
  Company Number: IN-STRIDES ARCOLAB LIMITED-2022SP017309

PATIENT
  Age: 53 Year
  Sex: Female

DRUGS (1)
  1. METHOTREXATE [Suspect]
     Active Substance: METHOTREXATE
     Indication: Psoriasis
     Dosage: 20 MILLIGRAM PER DAY
     Route: 048

REACTIONS (4)
  - Accidental overdose [Unknown]
  - Mucocutaneous ulceration [Recovered/Resolved]
  - Pancytopenia [Recovered/Resolved]
  - Toxicity to various agents [Unknown]
